FAERS Safety Report 7738008-0 (Version None)
Quarter: 2011Q3

REPORT INFORMATION
  Report Type: 
  Country: None (occurrence: None)
  Receive Date: 20110908
  Receipt Date: 20110831
  Transmission Date: 20111222
  Serious: Yes (Hospitalization)
  Sender: FDA-Public Use
  Company Number: DE-CEPHALON-2011002367

PATIENT
  Sex: Male
  Weight: 118 kg

DRUGS (2)
  1. BORTEZOMIB [Concomitant]
  2. TREANDA [Suspect]
     Indication: MULTIPLE MYELOMA
     Route: 042

REACTIONS (3)
  - PYREXIA [None]
  - MENINGITIS [None]
  - LISTERIA SEPSIS [None]
